FAERS Safety Report 6279941-9 (Version None)
Quarter: 2009Q3

REPORT INFORMATION
  Report Type: 
  Country: None (occurrence: None)
  Receive Date: 20090723
  Receipt Date: 20090223
  Transmission Date: 20100115
  Serious: No
  Sender: FDA-Public Use
  Company Number: US-AMGEN-KDL335494

PATIENT
  Sex: Female

DRUGS (2)
  1. PROCRIT [Suspect]
     Indication: ANAEMIA
  2. UNSPECIFIED MEDICATION [Concomitant]

REACTIONS (2)
  - ANAEMIA [None]
  - RASH [None]
